FAERS Safety Report 6100505-1 (Version None)
Quarter: 2009Q1

REPORT INFORMATION
  Report Type: 
  Country: None (occurrence: None)
  Receive Date: 20090227
  Receipt Date: 20090227
  Transmission Date: 20090719
  Serious: Yes (Hospitalization)
  Sender: FDA-Public Use
  Company Number: None

PATIENT
  Sex: Female
  Weight: 53.9 kg

DRUGS (10)
  1. ABILIFY [Suspect]
     Indication: BIPOLAR DISORDER
     Dosage: 10MG PO QD
     Dates: start: 20030101
  2. DEPAKOTE [Concomitant]
  3. LIPITOR [Concomitant]
  4. NEXIUM [Concomitant]
  5. SUCRALFATE [Concomitant]
  6. AMBIEN ER [Concomitant]
  7. PRILOSEC [Concomitant]
  8. PREMARIN [Concomitant]
  9. FLORINAL [Concomitant]
  10. CAPTOPRIL [Concomitant]

REACTIONS (1)
  - SUICIDAL IDEATION [None]
